FAERS Safety Report 9270410 (Version 1)
Quarter: 2013Q2

REPORT INFORMATION
  Report Type: Spontaneous
  Country: US (occurrence: US)
  Receive Date: 20130503
  Receipt Date: 20130503
  Transmission Date: 20140414
  Serious: Yes (Other)
  Sender: FDA-Public Use
  Company Number: US-JNJFOC-20130413349

PATIENT
  Sex: 0

DRUGS (2)
  1. HUMAN CLOTTABLE PROTEIN/HUMAN THROMBIN [Suspect]
     Indication: HAEMOSTASIS
     Dosage: 2-5 ML
     Route: 065
  2. ALL OTHER THERAPEUTIC PRODUCT [Concomitant]
     Indication: HAEMOSTASIS
     Route: 061

REACTIONS (2)
  - Vascular pseudoaneurysm [Recovered/Resolved]
  - Off label use [Unknown]
